FAERS Safety Report 14895621 (Version 1)
Quarter: 2018Q2

REPORT INFORMATION
  Report Type: Spontaneous
  Country: US (occurrence: US)
  Receive Date: 20180515
  Receipt Date: 20180515
  Transmission Date: 20180711
  Serious: No
  Sender: FDA-Public Use
  Company Number: US-BAYER-2018-085380

PATIENT
  Age: 1 Year
  Sex: Female

DRUGS (2)
  1. MIRALAX [Suspect]
     Active Substance: POLYETHYLENE GLYCOL 3350
     Dosage: UNK UNK, QD (1-5 DF)
     Route: 048
  2. MIRALAX [Suspect]
     Active Substance: POLYETHYLENE GLYCOL 3350
     Dosage: 0.5 DF, QD
     Route: 048

REACTIONS (7)
  - Product use issue [Unknown]
  - Aggression [Recovered/Resolved]
  - Drug administered to patient of inappropriate age [Unknown]
  - Throat clearing [Recovered/Resolved]
  - Off label use [Unknown]
  - Abnormal behaviour [Recovered/Resolved]
  - Gastric disorder [Unknown]
